FAERS Safety Report 5086074-6 (Version None)
Quarter: 2006Q3

REPORT INFORMATION
  Report Type: 
  Country: None (occurrence: None)
  Receive Date: 20060817
  Receipt Date: 20060808
  Transmission Date: 20061208
  Serious: Yes (Hospitalization)
  Sender: FDA-Public Use
  Company Number: 2006P1000373

PATIENT
  Age: 77 Year
  Sex: Male
  Weight: 50 kg

DRUGS (11)
  1. RETEPLASE ( RETEPLASE) [Suspect]
     Indication: ACUTE MYOCARDIAL INFARCTION
     Dosage: IV
     Route: 042
     Dates: start: 20060627, end: 20060627
  2. REOPRO [Suspect]
     Indication: ACUTE MYOCARDIAL INFARCTION
     Dosage: SEE IMAGE, IV
     Route: 042
     Dates: start: 20060627, end: 20060627
  3. REOPRO [Suspect]
     Indication: ACUTE MYOCARDIAL INFARCTION
     Dosage: SEE IMAGE, IV
     Route: 042
     Dates: start: 20060627
  4. ASPIRIN [Concomitant]
  5. NITROGLYCERIN [Concomitant]
  6. HEPARIN [Concomitant]
  7. CLOPIDOGREL [Concomitant]
  8. DIGOXIN [Concomitant]
  9. FUROSEMIDE [Concomitant]
  10. RAMIPRIL [Concomitant]
  11. ROSUVASTATIN [Concomitant]

REACTIONS (19)
  - ATRIAL FIBRILLATION [None]
  - BRONCHITIS ACUTE [None]
  - CARDIO-RESPIRATORY ARREST [None]
  - CARDIOGENIC SHOCK [None]
  - CORONARY ARTERY OCCLUSION [None]
  - DEHYDRATION [None]
  - DIZZINESS [None]
  - EJECTION FRACTION DECREASED [None]
  - HAEMATOCRIT DECREASED [None]
  - HAEMOGLOBIN DECREASED [None]
  - HYPERKALAEMIA [None]
  - HYPOCALCAEMIA [None]
  - HYPOTENSION [None]
  - ORTHOSTATIC HYPOTENSION [None]
  - PULMONARY CONGESTION [None]
  - THERAPY NON-RESPONDER [None]
  - VENTRICULAR DYSKINESIA [None]
  - VENTRICULAR FIBRILLATION [None]
  - VENTRICULAR TACHYCARDIA [None]
